FAERS Safety Report 16365381 (Version 1)
Quarter: 2019Q2

REPORT INFORMATION
  Report Type: Spontaneous
  Country: GB (occurrence: GB)
  Receive Date: 20190529
  Receipt Date: 20190529
  Transmission Date: 20190711
  Serious: Yes (Hospitalization, Other)
  Sender: FDA-Public Use
  Company Number: GB-VELOXIS PHARMACEUTICALS, INC.-2019VELGB1537

PATIENT
  Age: 48 Year
  Sex: Male

DRUGS (2)
  1. MYCOPHENOLIC ACID. [Concomitant]
     Active Substance: MYCOPHENOLIC ACID
     Indication: RENAL TRANSPLANT
  2. ENVARSUS XR [Suspect]
     Active Substance: TACROLIMUS
     Indication: RENAL TRANSPLANT

REACTIONS (5)
  - Cutaneous malacoplakia [Recovering/Resolving]
  - Transplant dysfunction [Unknown]
  - Ureteric anastomosis complication [Unknown]
  - Escherichia infection [Recovering/Resolving]
  - Hydronephrosis [Unknown]
